FAERS Safety Report 9399533 (Version 1)
Quarter: 2013Q3

REPORT INFORMATION
  Report Type: Spontaneous
  Country: FR (occurrence: FR)
  Receive Date: 20130715
  Receipt Date: 20130715
  Transmission Date: 20140515
  Serious: Yes (Death)
  Sender: FDA-Public Use
  Company Number: FR-JNJFOC-20130704306

PATIENT
  Age: 78 Year
  Sex: Female

DRUGS (2)
  1. IXPRIM [Suspect]
     Indication: PRODUCT USED FOR UNKNOWN INDICATION
     Route: 048
     Dates: start: 20130420, end: 20130506
  2. LAMALINE [Suspect]
     Indication: PRODUCT USED FOR UNKNOWN INDICATION
     Route: 048
     Dates: start: 20130420, end: 20130506

REACTIONS (3)
  - Asthenia [Fatal]
  - Dyspnoea [Fatal]
  - Confusional state [Fatal]
